FAERS Safety Report 10529197 (Version 2)
Quarter: 2015Q1

REPORT INFORMATION
  Report Type: Spontaneous
  Country: FR (occurrence: FR)
  Receive Date: 20141020
  Receipt Date: 20150119
  Transmission Date: 20150720
  Serious: Yes (Other)
  Sender: FDA-Public Use
  Company Number: FR-GILEAD-2014-0118786

PATIENT
  Age: 72 Year
  Sex: Male

DRUGS (4)
  1. TRUVADA [Suspect]
     Active Substance: EMTRICITABINE\TENOFOVIR DISOPROXIL FUMARATE
     Indication: HEPATITIS B
     Dosage: 1 DF, QOD
     Route: 048
  2. TRUVADA [Suspect]
     Active Substance: EMTRICITABINE\TENOFOVIR DISOPROXIL FUMARATE
     Indication: OFF LABEL USE
  3. CICLOSPORINE [Concomitant]
     Active Substance: CYCLOSPORINE
  4. AVK [Concomitant]

REACTIONS (3)
  - Amyloidosis [Unknown]
  - Ischaemic cardiomyopathy [Unknown]
  - Off label use [Unknown]
